FAERS Safety Report 11981669 (Version 1)
Quarter: 2016Q1

REPORT INFORMATION
  Report Type: Spontaneous
  Country: US (occurrence: US)
  Receive Date: 20160131
  Receipt Date: 20160131
  Transmission Date: 20160526
  Serious: No
  Sender: FDA-Public Use
  Company Number: US-009507513-1601USA009416

PATIENT
  Age: 24 Year
  Sex: Female
  Weight: 85.26 kg

DRUGS (1)
  1. NEXPLANON [Suspect]
     Active Substance: ETONOGESTREL
     Indication: CONTRACEPTION
     Dosage: 68MG ONCE EVERY THREE YEARS
     Route: 059
     Dates: start: 20150109

REACTIONS (2)
  - Implant site scar [Unknown]
  - Implant site mass [Unknown]

NARRATIVE: CASE EVENT DATE: 20151220
